FAERS Safety Report 4806428-X (Version None)
Quarter: 2005Q4

REPORT INFORMATION
  Report Type: 
  Country: None (occurrence: None)
  Receive Date: 20051019
  Receipt Date: 20051006
  Transmission Date: 20060501
  Serious: Yes (Other)
  Sender: FDA-Public Use
  Company Number: 2005PV003074

PATIENT

DRUGS (1)
  1. BYETTA [Suspect]
     Dosage: SC
     Route: 058
     Dates: start: 20050101

REACTIONS (1)
  - CREATININE RENAL CLEARANCE DECREASED [None]
